FAERS Safety Report 10282064 (Version 2)
Quarter: 2014Q3

REPORT INFORMATION
  Report Type: Spontaneous
  Country: US (occurrence: US)
  Receive Date: 20140707
  Receipt Date: 20140707
  Transmission Date: 20150326
  Serious: Yes (Death, Other)
  Sender: FDA-Public Use
  Company Number: US-ELI_LILLY_AND_COMPANY-US201405004872

PATIENT
  Sex: Male
  Weight: 63.49 kg

DRUGS (1)
  1. HUMALOG [Suspect]
     Active Substance: INSULIN LISPRO
     Indication: PRODUCT USED FOR UNKNOWN INDICATION
     Dosage: UNK
     Route: 058

REACTIONS (6)
  - Blood glucose decreased [Unknown]
  - Lethargy [Unknown]
  - Abnormal behaviour [Unknown]
  - Death [Fatal]
  - Fall [Recovered/Resolved]
  - Blood glucose fluctuation [Unknown]
